FAERS Safety Report 5918596-7 (Version None)
Quarter: 2008Q4

REPORT INFORMATION
  Report Type: 
  Country: None (occurrence: None)
  Receive Date: 20081014
  Receipt Date: 20081014
  Transmission Date: 20090506
  Serious: Yes (Other)
  Sender: FDA-Public Use
  Company Number: None

PATIENT
  Age: 8 Year
  Sex: Female
  Weight: 23.587 kg

DRUGS (1)
  1. SINGULAIR [Suspect]
     Indication: SEASONAL ALLERGY

REACTIONS (6)
  - ADENOTONSILLECTOMY [None]
  - AGITATION [None]
  - ATTENTION DEFICIT/HYPERACTIVITY DISORDER [None]
  - LEARNING DISORDER [None]
  - MOOD SWINGS [None]
  - RESTLESSNESS [None]
